FAERS Safety Report 6180186-1 (Version None)
Quarter: 2009Q2

REPORT INFORMATION
  Report Type: 
  Country: None (occurrence: None)
  Receive Date: 20090505
  Receipt Date: 20090430
  Transmission Date: 20091009
  Serious: Yes (Life-Threatening, Hospitalization)
  Sender: FDA-Public Use
  Company Number: US-GENENTECH-280749

PATIENT
  Sex: Female
  Weight: 152.83 kg

DRUGS (1)
  1. HERCEPTIN [Suspect]
     Indication: BREAST CANCER
     Dosage: 910 MG, Q3W
     Route: 042
     Dates: start: 20090401, end: 20090401

REACTIONS (1)
  - ACUTE MYOCARDIAL INFARCTION [None]
